FAERS Safety Report 10228742 (Version 1)
Quarter: 2014Q2

REPORT INFORMATION
  Report Type: Report from Study
  Country: US (occurrence: US)
  Receive Date: 20140610
  Receipt Date: 20140610
  Transmission Date: 20141212
  Serious: Yes (Hospitalization)
  Sender: FDA-Public Use
  Company Number: US-MERCK-1406USA001673

PATIENT
  Age: 78 Year
  Sex: Male
  Weight: 94.68 kg

DRUGS (4)
  1. VORINOSTAT [Suspect]
     Indication: MYELODYSPLASTIC SYNDROME
     Dosage: 300 MG, BID (DAYS 3 - 9)
     Route: 048
     Dates: start: 20140521, end: 20140527
  2. VORINOSTAT [Suspect]
     Dosage: 300 MG, BID
     Route: 048
     Dates: start: 20140416, end: 20140422
  3. AZACITIDINE [Suspect]
     Indication: MYELODYSPLASTIC SYNDROME
     Dosage: 75MG/M2 SQ/ IV ON DAYS 1-7OR ON DAYS 1-5 AND DAYS 8-9
     Dates: start: 20140519
  4. AZACITIDINE [Suspect]
     Dosage: 75MG/M2 SQ/ IV ON DAYS 1-7OR ON DAYS 1-5 AND DAYS 8-9
     Dates: start: 20140414

REACTIONS (1)
  - Gastric haemorrhage [Not Recovered/Not Resolved]
